FAERS Safety Report 21410439 (Version 1)
Quarter: 2022Q4

REPORT INFORMATION
  Report Type: Spontaneous
  Country: FR (occurrence: FR)
  Receive Date: 20221005
  Receipt Date: 20221005
  Transmission Date: 20230113
  Serious: Yes (Other)
  Sender: FDA-Public Use
  Company Number: FR-GILEAD-2022-0599596

PATIENT
  Sex: Male

DRUGS (7)
  1. VIREAD [Suspect]
     Active Substance: TENOFOVIR DISOPROXIL FUMARATE
     Indication: HIV infection
     Dosage: UNK
     Route: 065
     Dates: start: 20040915, end: 20051115
  2. VIREAD [Suspect]
     Active Substance: TENOFOVIR DISOPROXIL FUMARATE
     Dosage: UNK
     Route: 065
     Dates: start: 20110415, end: 20120915
  3. VIREAD [Suspect]
     Active Substance: TENOFOVIR DISOPROXIL FUMARATE
     Dosage: UNK
     Route: 065
     Dates: start: 20160527, end: 20181008
  4. NORVIR [Concomitant]
     Active Substance: RITONAVIR
  5. TELZIR [Concomitant]
     Active Substance: FOSAMPRENAVIR CALCIUM
  6. ZIAGEN [Concomitant]
     Active Substance: ABACAVIR SULFATE
  7. REYATAZ [Concomitant]
     Active Substance: ATAZANAVIR SULFATE

REACTIONS (3)
  - Blood HIV RNA increased [Unknown]
  - Virologic failure [Unknown]
  - Drug ineffective [Unknown]
